FAERS Safety Report 25214815 (Version 1)
Quarter: 2025Q2

REPORT INFORMATION
  Report Type: Spontaneous
  Country: US (occurrence: None)
  Receive Date: 20250418
  Receipt Date: 20250418
  Transmission Date: 20250716
  Serious: No
  Sender: FDA-CTU
  Company Number: None

PATIENT
  Age: 70 Year
  Sex: Male

DRUGS (1)
  1. SKYRIZI [Suspect]
     Active Substance: RISANKIZUMAB-RZAA
     Indication: Crohn^s disease
     Route: 042
     Dates: start: 20250219

REACTIONS (4)
  - Chromaturia [None]
  - Blood bilirubin increased [None]
  - Blood alkaline phosphatase increased [None]
  - Blood urine present [None]

NARRATIVE: CASE EVENT DATE: 20250416
